FAERS Safety Report 25873498 (Version 2)
Quarter: 2025Q4

REPORT INFORMATION
  Report Type: Report from Study
  Country: US (occurrence: US)
  Receive Date: 20251002
  Receipt Date: 20251103
  Transmission Date: 20260118
  Serious: Yes (Other)
  Sender: ABBVIE
  Company Number: US-ABBVIE-6482524

PATIENT
  Age: 52 Year
  Sex: Female

DRUGS (6)
  1. SKYRIZI [Suspect]
     Active Substance: RISANKIZUMAB-RZAA
     Indication: Psoriasis
     Route: 058
     Dates: start: 20250626
  2. CETIRIZINE [Concomitant]
     Active Substance: CETIRIZINE HYDROCHLORIDE
     Indication: Product used for unknown indication
  3. SEMAGLUTIDE [Concomitant]
     Active Substance: SEMAGLUTIDE
     Indication: Product used for unknown indication
     Dosage: COMPOUNDED SEMAGLUTIDE
  4. VITAMIN D [Concomitant]
     Active Substance: VITAMIN D NOS
     Indication: Product used for unknown indication
  5. TRAZODONE [Concomitant]
     Active Substance: TRAZODONE HYDROCHLORIDE
     Indication: Product used for unknown indication
  6. LAMOTRIGINE [Concomitant]
     Active Substance: LAMOTRIGINE
     Indication: Product used for unknown indication

REACTIONS (4)
  - Hysterectomy [Recovering/Resolving]
  - Haemorrhage [Unknown]
  - Uterine disorder [Unknown]
  - Injection site haemorrhage [Recovered/Resolved]

NARRATIVE: CASE EVENT DATE: 20250101
